FAERS Safety Report 22224472 (Version 1)
Quarter: 2023Q2

REPORT INFORMATION
  Report Type: Spontaneous
  Country: US (occurrence: None)
  Receive Date: 20230417
  Receipt Date: 20230417
  Transmission Date: 20230721
  Serious: No
  Sender: FDA-Public Use
  Company Number: None

PATIENT
  Age: 30 Year
  Sex: Male
  Weight: 111.6 kg

DRUGS (5)
  1. WEGOVY [Suspect]
     Active Substance: SEMAGLUTIDE
     Indication: Weight decreased
     Dosage: OTHER QUANTITY : 1 INJECTION(S);?OTHER FREQUENCY : WEEKLY;?OTHER ROUTE : SUBCUTANEOUS INJECTION;?
     Route: 058
     Dates: start: 20230404
  2. METOPROLOL TARTRATE [Concomitant]
     Active Substance: METOPROLOL TARTRATE
  3. Azalestine [Concomitant]
  4. FLUTICASONE [Concomitant]
     Active Substance: FLUTICASONE
  5. VITAMINS [Concomitant]
     Active Substance: VITAMINS

REACTIONS (2)
  - Abnormal dreams [None]
  - Nightmare [None]

NARRATIVE: CASE EVENT DATE: 20230416
